FAERS Safety Report 12834129 (Version 2)
Quarter: 2016Q4

REPORT INFORMATION
  Report Type: Spontaneous
  Country: KR (occurrence: KR)
  Receive Date: 20161010
  Receipt Date: 20161014
  Transmission Date: 20170207
  Serious: Yes (Hospitalization)
  Sender: FDA-Public Use
  Company Number: KR-SA-2016SA184649

PATIENT
  Age: 79 Year
  Sex: Female

DRUGS (1)
  1. TRIAMCINOLONE ACETONIDE. [Suspect]
     Active Substance: TRIAMCINOLONE ACETONIDE
     Route: 065

REACTIONS (8)
  - Feeling hot [Unknown]
  - Arthropathy [Unknown]
  - Abscess [Unknown]
  - Aspergillus infection [Recovered/Resolved]
  - Tendon rupture [Unknown]
  - Swelling [Unknown]
  - Granuloma [Unknown]
  - Tenosynovitis [Unknown]
